FAERS Safety Report 12176968 (Version 1)
Quarter: 2016Q1

REPORT INFORMATION
  Report Type: Spontaneous
  Country: FR (occurrence: FR)
  Receive Date: 20160314
  Receipt Date: 20160314
  Transmission Date: 20160526
  Serious: Yes (Other)
  Sender: FDA-Public Use
  Company Number: PHHY2016FR029682

PATIENT
  Age: 66 Year
  Sex: Male

DRUGS (1)
  1. GLIVEC [Suspect]
     Active Substance: IMATINIB MESYLATE
     Indication: GASTROINTESTINAL STROMAL TUMOUR
     Dosage: 400 MG, QD (1 DF)
     Route: 048
     Dates: start: 2009

REACTIONS (4)
  - Infection [Recovered/Resolved]
  - Fistula [Not Recovered/Not Resolved]
  - Lipoma [Unknown]
  - Infection [Unknown]

NARRATIVE: CASE EVENT DATE: 201507
